FAERS Safety Report 9751516 (Version 1)
Quarter: 2013Q4

REPORT INFORMATION
  Report Type: Spontaneous
  Country: US (occurrence: US)
  Receive Date: 20131212
  Receipt Date: 20131212
  Transmission Date: 20140711
  Serious: No
  Sender: FDA-Public Use
  Company Number: US-PURDUE-USA-2013-0099235

PATIENT
  Sex: Male

DRUGS (11)
  1. DILAUDID TABLET [Suspect]
     Indication: PAIN
     Dosage: UNK
     Route: 048
     Dates: start: 201210, end: 2012
  2. NORCO [Suspect]
     Indication: PAIN
     Dosage: UNK
     Route: 048
     Dates: start: 201210, end: 2012
  3. VILOXAZINE HYDROCHLORIDE [Suspect]
     Indication: MAJOR DEPRESSION
     Dosage: 10 MG, DAILY
     Route: 048
     Dates: start: 201207, end: 2012
  4. VILOXAZINE HYDROCHLORIDE [Suspect]
     Dosage: 20 MG, DAILY
     Route: 048
     Dates: end: 2012
  5. VILOXAZINE HYDROCHLORIDE [Suspect]
     Dosage: 40 MG, DAILY
     Route: 048
     Dates: end: 2012
  6. VILOXAZINE HYDROCHLORIDE [Suspect]
     Dosage: 30 MG, DAILY
     Route: 048
     Dates: end: 2012
  7. VILOXAZINE HYDROCHLORIDE [Suspect]
     Dosage: 35 MG, DAILY
     Route: 048
     Dates: end: 2012
  8. VILOXAZINE HYDROCHLORIDE [Suspect]
     Dosage: 40 MG, DAILY
     Route: 048
     Dates: end: 2012
  9. VILOXAZINE HYDROCHLORIDE [Suspect]
     Dosage: 35 MG, DAILY
     Route: 048
     Dates: end: 2012
  10. BUPROPION HCL ER (XL) 150MG [Suspect]
     Indication: ANXIETY
     Dosage: 300 MG, DAILY
     Route: 048
     Dates: end: 20130208
  11. ESCITALOPRAM [Concomitant]
     Indication: PRODUCT USED FOR UNKNOWN INDICATION

REACTIONS (1)
  - Constipation [Recovered/Resolved]
